FAERS Safety Report 8242627-5 (Version None)
Quarter: 2012Q1

REPORT INFORMATION
  Report Type: 
  Country: None (occurrence: None)
  Receive Date: 20120314
  Receipt Date: 20101112
  Transmission Date: 20120608
  Serious: No
  Sender: FDA-Public Use
  Company Number: PHHY2010US77762

PATIENT
  Age: 18 Year
  Sex: Female

DRUGS (5)
  1. FANAPT [Suspect]
     Dosage: 6 MG, BID, ORAL
     Route: 048
     Dates: start: 20101020
  2. REMERON [Concomitant]
  3. EFFEXOR [Concomitant]
  4. MELLARIL [Concomitant]
  5. MIDODRINE HYDROCHLORIDE [Concomitant]

REACTIONS (2)
  - HEART RATE INCREASED [None]
  - HYPOTENSION [None]
